FAERS Safety Report 8531415-8 (Version None)
Quarter: 2012Q3

REPORT INFORMATION
  Report Type: 
  Country: None (occurrence: None)
  Receive Date: 20120723
  Receipt Date: 20120611
  Transmission Date: 20120928
  Serious: Yes (Hospitalization)
  Sender: FDA-Public Use
  Company Number: US-ASTRAZENECA-2012MN28296

PATIENT
  Age: 218 Day
  Sex: Female
  Weight: 6.8 kg

DRUGS (4)
  1. SYNAGIS [Suspect]
     Route: 030
     Dates: start: 20120319
  2. PRILOSEC SUSPENSION [Concomitant]
     Indication: GASTROOESOPHAGEAL REFLUX DISEASE
     Dosage: 2 MG/ML, 1 ML BID
     Route: 048
     Dates: start: 20110801
  3. SYNAGIS [Suspect]
     Route: 030
     Dates: start: 20120220, end: 20120220
  4. SYNAGIS [Suspect]
     Route: 030
     Dates: start: 20111121, end: 20120116

REACTIONS (5)
  - TEETHING [None]
  - RHINORRHOEA [None]
  - SNEEZING [None]
  - UPPER RESPIRATORY TRACT INFECTION [None]
  - RESPIRATORY SYNCYTIAL VIRUS INFECTION [None]
